FAERS Safety Report 24693034 (Version 2)
Quarter: 2025Q1

REPORT INFORMATION
  Report Type: Spontaneous
  Country: US (occurrence: US)
  Receive Date: 20241203
  Receipt Date: 20250217
  Transmission Date: 20250409
  Serious: No
  Sender: LUNDBECK
  Company Number: US-LUNDBECK-DKLU4006168

PATIENT
  Age: 56 Year
  Sex: Female
  Weight: 75.296 kg

DRUGS (1)
  1. VYEPTI [Suspect]
     Active Substance: EPTINEZUMAB-JJMR
     Indication: Migraine
     Dosage: 300 MILLIGRAM
     Route: 041

REACTIONS (3)
  - Malaise [Unknown]
  - Migraine [Not Recovered/Not Resolved]
  - Product dose omission issue [Unknown]
